FAERS Safety Report 25087399 (Version 1)
Quarter: 2025Q1

REPORT INFORMATION
  Report Type: Spontaneous
  Country: US (occurrence: US)
  Receive Date: 20250318
  Receipt Date: 20250318
  Transmission Date: 20250408
  Serious: No
  Sender: AUROBINDO
  Company Number: US-AUROBINDO-AUR-APL-2024-007047

PATIENT
  Sex: Female

DRUGS (2)
  1. CETIRIZINE [Suspect]
     Active Substance: CETIRIZINE HYDROCHLORIDE
     Indication: Mechanical urticaria
     Route: 048
  2. LORATADINE [Suspect]
     Active Substance: LORATADINE
     Indication: Mechanical urticaria
     Route: 048
     Dates: start: 20230621

REACTIONS (1)
  - Drug ineffective [Unknown]
